FAERS Safety Report 9022528 (Version 1)
Quarter: 2013Q1

REPORT INFORMATION
  Report Type: Spontaneous
  Country: US (occurrence: US)
  Receive Date: 20130118
  Receipt Date: 20130118
  Transmission Date: 20140127
  Serious: No
  Sender: FDA-Public Use
  Company Number: US-GLAXOSMITHKLINE-A0958319A

PATIENT
  Age: 44 Year
  Sex: Male
  Weight: 100 kg

DRUGS (11)
  1. PROMACTA [Suspect]
     Indication: PRODUCT USED FOR UNKNOWN INDICATION
     Dosage: 25MG PER DAY
     Route: 048
  2. UNKNOWN [Concomitant]
  3. TETRACAINE [Concomitant]
  4. ERYTHROMYCIN [Concomitant]
  5. NADOLOL [Concomitant]
  6. VITAMIN C [Concomitant]
  7. MILK THISTLE [Concomitant]
  8. VITAMIN B12 [Concomitant]
  9. UNKNOWN [Concomitant]
  10. VITAMIN B6 [Concomitant]
  11. VITAMIN D2 [Concomitant]

REACTIONS (4)
  - Headache [Not Recovered/Not Resolved]
  - Influenza like illness [Not Recovered/Not Resolved]
  - Fatigue [Not Recovered/Not Resolved]
  - Asthenia [Not Recovered/Not Resolved]
